FAERS Safety Report 8943302 (Version 2)
Quarter: 2013Q1

REPORT INFORMATION
  Report Type: Spontaneous
  Country: AT (occurrence: AT)
  Receive Date: 20121204
  Receipt Date: 20130108
  Transmission Date: 20140127
  Serious: Yes (Hospitalization, Other)
  Sender: FDA-Public Use
  Company Number: AT-009507513-1211AUT011045

PATIENT
  Sex: 0

DRUGS (2)
  1. THERAPY UNSPECIFIED [Suspect]
     Route: 048
  2. REMICADE [Suspect]
     Route: 042

REACTIONS (2)
  - Renal cell carcinoma [Unknown]
  - Renal tumour excision [Unknown]
